FAERS Safety Report 15338738 (Version 2)
Quarter: 2019Q1

REPORT INFORMATION
  Report Type: Spontaneous
  Country: US (occurrence: US)
  Receive Date: 20180831
  Receipt Date: 20190307
  Transmission Date: 20190417
  Serious: No
  Sender: FDA-Public Use
  Company Number: US-INTERCEPT-PMOCA2018001257

PATIENT

DRUGS (2)
  1. OCALIVA [Suspect]
     Active Substance: OBETICHOLIC ACID
     Indication: PRIMARY BILIARY CHOLANGITIS
     Dosage: 10 MG, QD
     Route: 048
     Dates: start: 20180524
  2. OCALIVA [Suspect]
     Active Substance: OBETICHOLIC ACID
     Indication: AUTOIMMUNE HEPATITIS

REACTIONS (6)
  - Nausea [Unknown]
  - Hyperchlorhydria [Not Recovered/Not Resolved]
  - Abdominal tenderness [Unknown]
  - Product prescribing error [Unknown]
  - Product dose omission [Unknown]
  - Vomiting [Not Recovered/Not Resolved]

NARRATIVE: CASE EVENT DATE: 20180801
